FAERS Safety Report 17792090 (Version 1)
Quarter: 2020Q2

REPORT INFORMATION
  Report Type: Spontaneous
  Country: CH (occurrence: CH)
  Receive Date: 20200515
  Receipt Date: 20200515
  Transmission Date: 20200714
  Serious: Yes (Other)
  Sender: FDA-Public Use
  Company Number: CH-SA-2020SA124099

PATIENT
  Age: 61 Year
  Sex: Female

DRUGS (52)
  1. HALDOL [Suspect]
     Active Substance: HALOPERIDOL
     Dosage: UNK
     Dates: start: 20200416, end: 20200416
  2. NOZINAN [Concomitant]
     Active Substance: LEVOMEPROMAZINE
     Dosage: UNK
     Dates: start: 20200419, end: 20200419
  3. DEXDOR [Concomitant]
     Active Substance: DEXMEDETOMIDINE HYDROCHLORIDE
     Dosage: UNK
     Dates: start: 20200423
  4. PROPOFOL. [Concomitant]
     Active Substance: PROPOFOL
     Dosage: UNK
     Dates: start: 20200413, end: 20200414
  5. TRACRIUM [Concomitant]
     Active Substance: ATRACURIUM BESYLATE
     Dates: start: 20200403, end: 20200404
  6. CEFTRIAXONE. [Suspect]
     Active Substance: CEFTRIAXONE
     Dates: start: 20200401, end: 20200405
  7. PARACETAMOL [Suspect]
     Active Substance: ACETAMINOPHEN
     Dosage: UNK
     Dates: start: 20200408, end: 20200413
  8. ESOMEPRAZOLE MAGNESIUM. [Suspect]
     Active Substance: ESOMEPRAZOLE MAGNESIUM
     Dosage: UNK
     Dates: start: 20200423
  9. IPRAMOL [Concomitant]
     Active Substance: ALBUTEROL SULFATE\IPRATROPIUM BROMIDE
     Dosage: UNK
     Dates: start: 20200407, end: 20200409
  10. MOVICOL [Concomitant]
     Active Substance: POLYETHYLENE GLYCOL 3350\POTASSIUM CHLORIDE\SODIUM BICARBONATE\SODIUM CHLORIDE
     Dosage: UNK
     Dates: start: 20200404
  11. ANTIBIOTICS FOR OTIC AND NASAL USE [Concomitant]
     Dosage: UNK
     Dates: start: 20200414, end: 20200415
  12. DEXDOR [Concomitant]
     Active Substance: DEXMEDETOMIDINE HYDROCHLORIDE
     Dosage: UNK
     Dates: start: 20200407, end: 20200410
  13. DIAMOX SEQUELS [Concomitant]
     Active Substance: ACETAZOLAMIDE
     Dosage: UNK
     Dates: start: 20200415, end: 20200415
  14. ANTIBIOTICS FOR OTIC AND NASAL USE [Concomitant]
     Dosage: UNK
     Dates: start: 20200419, end: 20200423
  15. SINTENYL [Concomitant]
     Active Substance: FENTANYL CITRATE
     Dosage: UNK
     Dates: start: 20200411, end: 20200423
  16. DORMICUM [Concomitant]
     Dosage: UNK
     Dates: start: 20200419, end: 20200420
  17. TRACRIUM [Concomitant]
     Active Substance: ATRACURIUM BESYLATE
     Dosage: UNK
     Dates: start: 20200417, end: 20200417
  18. AZITHROMYCIN ANHYDROUS. [Suspect]
     Active Substance: AZITHROMYCIN ANHYDROUS
     Dosage: UNK
     Dates: start: 20200402, end: 20200406
  19. LASIX [Suspect]
     Active Substance: FUROSEMIDE
     Dosage: UNK
     Dates: start: 20200421, end: 20200423
  20. CLEXANE [Suspect]
     Active Substance: ENOXAPARIN SODIUM
     Dosage: 40 MG
     Dates: start: 20200404, end: 20200417
  21. REMDESIVIR. [Suspect]
     Active Substance: REMDESIVIR
     Dosage: UNK
     Dates: start: 20200405, end: 20200413
  22. DISTRANEURIN [Concomitant]
     Active Substance: CLOMETHIAZOLE
     Dates: start: 20200412, end: 20200413
  23. DORMICUM [Concomitant]
     Dosage: UNK
     Dates: start: 20200403, end: 20200405
  24. NORADRENALINE [Concomitant]
     Active Substance: NOREPINEPHRINE
     Dosage: UNK
     Dates: start: 20200408, end: 20200410
  25. PROPOFOL. [Concomitant]
     Active Substance: PROPOFOL
     Dosage: UNK
     Dates: start: 20200407, end: 20200409
  26. LASIX [Suspect]
     Active Substance: FUROSEMIDE
     Dosage: UNK
     Dates: start: 20200406, end: 20200406
  27. LASIX [Suspect]
     Active Substance: FUROSEMIDE
     Dosage: UNK
     Dates: start: 20200408, end: 20200411
  28. NOVORAPID [Concomitant]
     Active Substance: INSULIN ASPART
     Dates: start: 20200420, end: 20200420
  29. SOLU-MEDROL [Concomitant]
     Active Substance: METHYLPREDNISOLONE SODIUM SUCCINATE
     Dosage: UNK
     Dates: start: 20200420, end: 20200423
  30. DEXDOR [Concomitant]
     Active Substance: DEXMEDETOMIDINE HYDROCHLORIDE
     Dosage: UNK
     Dates: start: 20200414, end: 20200419
  31. DORMICUM [Concomitant]
     Dosage: UNK
     Dates: start: 20200416, end: 20200416
  32. TRACRIUM [Concomitant]
     Active Substance: ATRACURIUM BESYLATE
     Dosage: UNK
     Dates: start: 20200413, end: 20200414
  33. CLEXANE [Suspect]
     Active Substance: ENOXAPARIN SODIUM
     Dosage: 40 MG
  34. LORAZEPAM. [Suspect]
     Active Substance: LORAZEPAM
     Dosage: UNK
     Dates: start: 20200416, end: 20200416
  35. MORPHINE [Concomitant]
     Active Substance: MORPHINE
     Dosage: UNK
     Dates: start: 20200410, end: 20200411
  36. ANTIBIOTICS FOR OTIC AND NASAL USE [Concomitant]
     Dosage: UNK
     Dates: start: 20200404, end: 20200409
  37. PROPOFOL. [Concomitant]
     Active Substance: PROPOFOL
     Dosage: UNK
     Dates: start: 20200404, end: 20200405
  38. ROCURONIUM [Concomitant]
     Active Substance: ROCURONIUM BROMIDE
     Dosage: UNK
     Dates: start: 20200419, end: 20200419
  39. CLARITHROMYCIN. [Suspect]
     Active Substance: CLARITHROMYCIN
     Dosage: UNK
     Dates: start: 20200401, end: 20200402
  40. OXAZEPAM. [Suspect]
     Active Substance: OXAZEPAM
     Dosage: UNK
     Dates: start: 20200408, end: 20200411
  41. PARACETAMOL [Suspect]
     Active Substance: ACETAMINOPHEN
     Dosage: UNK
     Dates: start: 20200417, end: 20200418
  42. ESOMEPRAZOLE MAGNESIUM. [Suspect]
     Active Substance: ESOMEPRAZOLE MAGNESIUM
     Dosage: UNK
  43. DIAMOX SEQUELS [Concomitant]
     Active Substance: ACETAZOLAMIDE
     Dosage: UNK
     Dates: start: 20200419, end: 20200419
  44. HEPARIN [Concomitant]
     Active Substance: HEPARIN SODIUM
     Dosage: UNK
     Dates: start: 20200418, end: 20200423
  45. SINTENYL [Concomitant]
     Active Substance: FENTANYL CITRATE
     Dosage: UNK
     Dates: start: 20200403, end: 20200409
  46. NORADRENALINE [Concomitant]
     Active Substance: NOREPINEPHRINE
     Dosage: UNK
     Dates: start: 20200413, end: 20200423
  47. AMLODIPINE [Suspect]
     Active Substance: AMLODIPINE BESYLATE
     Dosage: 5 MG
     Dates: start: 20200410, end: 20200410
  48. QUETIAPINE FUMARATE. [Suspect]
     Active Substance: QUETIAPINE FUMARATE
     Dosage: UNK
     Dates: start: 20200414, end: 20200414
  49. DIAMOX SEQUELS [Concomitant]
     Active Substance: ACETAZOLAMIDE
     Dosage: UNK
     Dates: start: 20200408, end: 20200408
  50. LEXOTANIL [Concomitant]
     Active Substance: BROMAZEPAM
     Dosage: UNK
     Dates: start: 20200419, end: 20200420
  51. NORADRENALINE [Concomitant]
     Active Substance: NOREPINEPHRINE
     Dosage: UNK
     Dates: start: 20200403, end: 20200405
  52. PROPOFOL. [Concomitant]
     Active Substance: PROPOFOL
     Dosage: UNK
     Dates: start: 20200416, end: 20200423

REACTIONS (3)
  - Eosinophilia [Not Recovered/Not Resolved]
  - Dermatitis exfoliative generalised [Not Recovered/Not Resolved]
  - Rash erythematous [Not Recovered/Not Resolved]

NARRATIVE: CASE EVENT DATE: 20200410
